FAERS Safety Report 6071097-0 (Version None)
Quarter: 2009Q1

REPORT INFORMATION
  Report Type: 
  Country: None (occurrence: None)
  Receive Date: 20090209
  Receipt Date: 20081201
  Transmission Date: 20090719
  Serious: No
  Sender: FDA-Public Use
  Company Number: A0758540A

PATIENT
  Age: 33 Year
  Sex: Female

DRUGS (2)
  1. PAXIL [Suspect]
     Indication: DEPRESSION
     Dosage: 25MG PER DAY
     Route: 048
  2. SYNTHROID [Concomitant]

REACTIONS (4)
  - ABNORMAL DREAMS [None]
  - FATIGUE [None]
  - NAUSEA [None]
  - SOMNOLENCE [None]
